FAERS Safety Report 6215087-3 (Version None)
Quarter: 2009Q2

REPORT INFORMATION
  Report Type: 
  Country: None (occurrence: None)
  Receive Date: 20090604
  Receipt Date: 20090527
  Transmission Date: 20091009
  Serious: Yes (Hospitalization)
  Sender: FDA-Public Use
  Company Number: US-NOVOPROD-285955

PATIENT
  Age: 52 Year
  Sex: Female

DRUGS (3)
  1. NOVOLOG [Suspect]
     Indication: INSULIN-REQUIRING TYPE 2 DIABETES MELLITUS
     Dosage: 14 IU, TID
     Route: 058
     Dates: start: 20090101
  2. LEVEMIR [Suspect]
     Indication: INSULIN-REQUIRING TYPE 2 DIABETES MELLITUS
     Dosage: 18 IU AT AM; 25 IU AT HS
     Route: 058
  3. DIOVAN                             /01319601/ [Concomitant]
     Indication: BLOOD PRESSURE INCREASED
     Route: 048
     Dates: end: 20090201

REACTIONS (2)
  - BLOOD GLUCOSE INCREASED [None]
  - CEREBROVASCULAR ACCIDENT [None]
